FAERS Safety Report 26147206 (Version 1)
Quarter: 2025Q4

REPORT INFORMATION
  Report Type: Spontaneous
  Country: EU (occurrence: EU)
  Receive Date: 20251211
  Receipt Date: 20251211
  Transmission Date: 20260117
  Serious: Yes (Life-Threatening, Other)
  Sender: SANOFI AVENTIS
  Company Number: None

PATIENT
  Age: 58 Year
  Sex: Female
  Weight: 50 kg

DRUGS (4)
  1. OXALIPLATIN [Suspect]
     Active Substance: OXALIPLATIN
     Dosage: 132 MG
     Route: 042
     Dates: start: 20251111
  2. PALONOSETRON [Concomitant]
     Active Substance: PALONOSETRON
     Dosage: 250 MG
     Route: 042
     Dates: start: 20251111, end: 20251111
  3. DEXAMETHASONE [Concomitant]
     Active Substance: DEXAMETHASONE
     Dosage: 8 MG
     Route: 042
     Dates: start: 20251111, end: 20251111
  4. LEUCOVORIN CALCIUM [Concomitant]
     Active Substance: LEUCOVORIN CALCIUM
     Dosage: 619 MG
     Route: 042
     Dates: start: 20251111

REACTIONS (4)
  - Oxygen saturation decreased [Recovering/Resolving]
  - Asphyxia [Recovering/Resolving]
  - Cardiac arrest [Recovering/Resolving]
  - Resuscitation [Unknown]

NARRATIVE: CASE EVENT DATE: 20251111
